FAERS Safety Report 7993031-6 (Version None)
Quarter: 2011Q4

REPORT INFORMATION
  Report Type: 
  Country: None (occurrence: None)
  Receive Date: 20111219
  Receipt Date: 20111208
  Transmission Date: 20120403
  Serious: Yes (Other)
  Sender: FDA-Public Use
  Company Number: US-PFIZER INC-2011299474

PATIENT
  Sex: Female
  Weight: 56.689 kg

DRUGS (2)
  1. ROBITUSSIN PEAK COLD MAXIMUM STRENGTH MULTI-SYMPTOM COLD [Suspect]
     Indication: COUGH
     Dosage: UNK
     Dates: start: 20111207
  2. ROBITUSSIN PEAK COLD MAXIMUM STRENGTH MULTI-SYMPTOM COLD [Suspect]
     Indication: NASAL CONGESTION

REACTIONS (4)
  - VISION BLURRED [None]
  - HEART RATE DECREASED [None]
  - DYSPNOEA [None]
  - TREMOR [None]
